FAERS Safety Report 7082995-3 (Version None)
Quarter: 2010Q4

REPORT INFORMATION
  Report Type: 
  Country: None (occurrence: None)
  Receive Date: 20101104
  Receipt Date: 20101025
  Transmission Date: 20110411
  Serious: Yes (Life-Threatening, Hospitalization)
  Sender: FDA-Public Use
  Company Number: US-BAYER-201031585NA

PATIENT
  Age: 46 Year
  Sex: Female
  Weight: 61 kg

DRUGS (4)
  1. MIRENA [Suspect]
     Indication: CONTRACEPTION
     Dosage: FREQUENCY: CONTINUOUS
     Route: 015
     Dates: start: 20100727, end: 20100803
  2. ZYRTEC [Concomitant]
  3. ZYBAN [Concomitant]
  4. ZEGRID [Concomitant]

REACTIONS (7)
  - ABDOMINAL TENDERNESS [None]
  - HYPOVOLAEMIC SHOCK [None]
  - MALAISE [None]
  - NAUSEA [None]
  - SALPINGITIS [None]
  - SEPTIC SHOCK [None]
  - TUBO-OVARIAN ABSCESS [None]
